FAERS Safety Report 4704501-8 (Version None)
Quarter: 2005Q2

REPORT INFORMATION
  Report Type: 
  Country: None (occurrence: None)
  Receive Date: 20050628
  Receipt Date: 20050614
  Transmission Date: 20051028
  Serious: Yes (Other)
  Sender: FDA-Public Use
  Company Number: DE_050616172

PATIENT
  Age: 85 Year
  Sex: Female

DRUGS (10)
  1. CYMBALTA [Suspect]
     Indication: DEPRESSION
     Dosage: 60 MG
     Dates: start: 20050601, end: 20050614
  2. HCT (HYDROCHLOROTHIAZIDE) [Concomitant]
  3. ACETYLSALICYLIC ACID SRT [Concomitant]
  4. LEVOTHYROXINE SODIUM [Concomitant]
  5. NOVALGIN (METAMIZOLE SODIUM MONOHYDRATE) [Concomitant]
  6. NEXIUM [Concomitant]
  7. BELOC ZOK (METROPOLOL SUCCINATE) [Concomitant]
  8. ISOSORBIDE DINITRATE [Concomitant]
  9. ENALAPRIL MALEATE [Concomitant]
  10. DOMINAL (PROTHIPENDYL HYDROCHLORIDE [Concomitant]

REACTIONS (1)
  - HYPONATRAEMIA [None]
